FAERS Safety Report 21338796 (Version 1)
Quarter: 2022Q3

REPORT INFORMATION
  Report Type: Spontaneous
  Country: JP (occurrence: JP)
  Receive Date: 20220915
  Receipt Date: 20220915
  Transmission Date: 20221027
  Serious: Yes (Other)
  Sender: FDA-Public Use
  Company Number: A202200619-001

PATIENT
  Age: 60 Year

DRUGS (3)
  1. BENDAMUSTINE HYDROCHLORIDE [Suspect]
     Active Substance: BENDAMUSTINE HYDROCHLORIDE
     Indication: Diffuse large B-cell lymphoma recurrent
     Dosage: UNDER 50MG/M2, CYCLE 1 PBR THERAPY
     Route: 042
     Dates: start: 20220815
  2. RITUXIMAB [Concomitant]
     Active Substance: RITUXIMAB
     Indication: Diffuse large B-cell lymphoma recurrent
     Dosage: 375 MG/M2, CYCLE 1 PBR THERAPY
     Route: 042
     Dates: start: 20220815
  3. POLIVY [Concomitant]
     Active Substance: POLATUZUMAB VEDOTIN-PIIQ
     Indication: Diffuse large B-cell lymphoma recurrent
     Dosage: 1.8 MG/KG, CYCLE 1 PBR THERAPY
     Route: 042
     Dates: start: 20220815

REACTIONS (3)
  - Aspergillus infection [Unknown]
  - Cytomegalovirus viraemia [Unknown]
  - Herpes zoster [Unknown]

NARRATIVE: CASE EVENT DATE: 20220801
